FAERS Safety Report 24671458 (Version 1)
Quarter: 2024Q4

REPORT INFORMATION
  Report Type: Spontaneous
  Country: US (occurrence: US)
  Receive Date: 20241127
  Receipt Date: 20241127
  Transmission Date: 20250115
  Serious: No
  Sender: PFIZER
  Company Number: US-PFIZER INC-PV202400152611

PATIENT
  Sex: Female

DRUGS (2)
  1. HYDROCORTISONE [Interacting]
     Active Substance: HYDROCORTISONE
  2. TAFINLAR [Interacting]
     Active Substance: DABRAFENIB MESYLATE

REACTIONS (1)
  - Drug interaction [Unknown]
